FAERS Safety Report 21857695 (Version 3)
Quarter: 2024Q2

REPORT INFORMATION
  Report Type: Report from Study
  Country: JP (occurrence: JP)
  Receive Date: 20230113
  Receipt Date: 20240524
  Transmission Date: 20240716
  Serious: Yes (Death)
  Sender: FDA-Public Use
  Company Number: JP-SAMOHPHARM-2022000527

PATIENT

DRUGS (11)
  1. CARBAGLU [Suspect]
     Active Substance: CARGLUMIC ACID
     Indication: Methylmalonic acidaemia
     Dosage: 1000 MILLIGRAM (200 MG/KG/DAY)
     Dates: start: 20210812, end: 20210908
  2. LEVOCARNITINE [Concomitant]
     Active Substance: LEVOCARNITINE
     Indication: Methylmalonic acidaemia
     Dosage: 4.5 MILLILITER
  3. HYCOBAL [COBAMAMIDE] [Concomitant]
     Indication: Methylmalonic acidaemia
     Dosage: 2 DOSAGE FORM
  4. URSO [Concomitant]
     Active Substance: URSODIOL
     Indication: Disease complication
     Dosage: 1 GRAM
  5. PHENOBARBITAL [Concomitant]
     Active Substance: PHENOBARBITAL
     Indication: Disease complication
     Dosage: 8 MILLILITER
  6. ZINC [Concomitant]
     Active Substance: PYRITHIONE ZINC\ZINC\ZINC CHLORIDE
     Indication: Disease complication
     Dosage: 7 MILLIGRAM
  7. FERRIC PYROPHOSPHATE [Concomitant]
     Active Substance: FERRIC PYROPHOSPHATE
     Indication: Disease complication
     Dosage: 4.4 MILLILITER
  8. FUROSEMIDE [Concomitant]
     Active Substance: FUROSEMIDE
     Indication: Disease complication
     Dosage: 4 MILLIGRAM
  9. ALDACTONE [Concomitant]
     Active Substance: SPIRONOLACTONE
     Indication: Disease complication
     Dosage: 4 MILLIGRAM
  10. ERYTHROCIN [ERYTHROMYCIN ETHYLSUCCINATE] [Concomitant]
     Indication: Infection prophylaxis
     Dosage: 40 MILLIGRAM
  11. AMBROXOL HYDROCHLORIDE [Concomitant]
     Active Substance: AMBROXOL HYDROCHLORIDE
     Indication: Infection prophylaxis
     Dosage: 4.5 MILLILITER

REACTIONS (2)
  - Liver disorder [Fatal]
  - Drug ineffective [Recovered/Resolved]

NARRATIVE: CASE EVENT DATE: 20210101
